FAERS Safety Report 25462183 (Version 1)
Quarter: 2025Q2

REPORT INFORMATION
  Report Type: Spontaneous
  Country: US (occurrence: None)
  Receive Date: 20250619
  Receipt Date: 20250619
  Transmission Date: 20250717
  Serious: Yes (unspecified)
  Sender: FDA-CTU
  Company Number: None

PATIENT
  Age: 66 Year
  Weight: 105.75 kg

DRUGS (10)
  1. ZICAM COLD REMEDY [Suspect]
     Active Substance: HOMEOPATHICS\ZINC ACETATE\ZINC GLUCONATE
     Indication: Nasopharyngitis
     Route: 050
     Dates: start: 20241201, end: 20250326
  2. GABAPENTIN [Concomitant]
     Active Substance: GABAPENTIN
  3. amlopdipine [Concomitant]
  4. BYSTOLIC [Concomitant]
     Active Substance: NEBIVOLOL HYDROCHLORIDE
  5. lansoprosol [Concomitant]
  6. CELEBREX [Concomitant]
     Active Substance: CELECOXIB
  7. FLONASE [Concomitant]
     Active Substance: FLUTICASONE PROPIONATE
  8. VITAMIN C [Concomitant]
     Active Substance: ASCORBIC ACID
  9. VITAMIN B COMPLEX [Concomitant]
     Active Substance: CYANOCOBALAMIN\DEXPANTHENOL\NIACINAMIDE\PYRIDOXINE HYDROCHLORIDE\RIBOFLAVIN 5^-PHOSPHATE SODIUM\THIA
  10. BIOTIN [Concomitant]
     Active Substance: BIOTIN

REACTIONS (4)
  - Headache [None]
  - Eye pain [None]
  - Wheezing [None]
  - Upper-airway cough syndrome [None]

NARRATIVE: CASE EVENT DATE: 20241201
